FAERS Safety Report 5386916-0 (Version None)
Quarter: 2007Q3

REPORT INFORMATION
  Report Type: 
  Country: None (occurrence: None)
  Receive Date: 20070713
  Receipt Date: 20070702
  Transmission Date: 20080115
  Serious: Yes (Hospitalization)
  Sender: FDA-Public Use
  Company Number: US-PFIZER INC-2007053414

PATIENT
  Sex: Male
  Weight: 94.8 kg

DRUGS (4)
  1. SUTENT [Suspect]
     Indication: METASTATIC RENAL CELL CARCINOMA
     Route: 048
  2. LIPITOR [Concomitant]
     Route: 048
  3. AVAPRO [Concomitant]
     Route: 048
     Dates: start: 19960101
  4. PRILOSEC [Concomitant]
     Route: 048

REACTIONS (1)
  - SYNCOPE VASOVAGAL [None]
